FAERS Safety Report 18504883 (Version 1)
Quarter: 2020Q4

REPORT INFORMATION
  Report Type: Spontaneous
  Country: US (occurrence: US)
  Receive Date: 20201115
  Receipt Date: 20201115
  Transmission Date: 20210114
  Serious: Yes (Other)
  Sender: FDA-Public Use
  Company Number: US-AUROBINDO-AUR-APL-2020-055715

PATIENT
  Age: 48 Year
  Sex: Male

DRUGS (2)
  1. DAPTOMYCIN. [Suspect]
     Active Substance: DAPTOMYCIN
     Indication: PANCREATITIS
     Dosage: UNK
     Route: 065
  2. MEROPENEM. [Suspect]
     Active Substance: MEROPENEM
     Indication: PANCREATITIS
     Dosage: UNK
     Route: 065

REACTIONS (5)
  - Transaminases increased [Unknown]
  - Type IV hypersensitivity reaction [Unknown]
  - Pyrexia [Unknown]
  - Flushing [Unknown]
  - Acute kidney injury [Unknown]
